FAERS Safety Report 8570478-0 (Version None)
Quarter: 2012Q3

REPORT INFORMATION
  Report Type: 
  Country: None (occurrence: None)
  Receive Date: 20120803
  Receipt Date: 20120724
  Transmission Date: 20120928
  Serious: No
  Sender: FDA-Public Use
  Company Number: US-ASTRAZENECA-2010SE24620

PATIENT
  Age: 61 Year
  Sex: Female

DRUGS (4)
  1. CRESTOR [Suspect]
     Route: 048
  2. NEXIUM [Suspect]
     Route: 048
  3. RHINOCORT [Suspect]
     Route: 045
  4. TOPROL-XL [Suspect]
     Route: 048

REACTIONS (6)
  - DYSPEPSIA [None]
  - PAIN [None]
  - DRUG DOSE OMISSION [None]
  - TYPE 2 DIABETES MELLITUS [None]
  - PALPITATIONS [None]
  - INTERVERTEBRAL DISC PROTRUSION [None]
